FAERS Safety Report 6906199-7 (Version None)
Quarter: 2010Q3

REPORT INFORMATION
  Report Type: 
  Country: None (occurrence: None)
  Receive Date: 20100804
  Receipt Date: 20100726
  Transmission Date: 20110219
  Serious: Yes (Other)
  Sender: FDA-Public Use
  Company Number: US-JNJFOC-20100402454

PATIENT
  Sex: Female
  Weight: 90.72 kg

DRUGS (6)
  1. REMICADE [Suspect]
     Indication: PSORIATIC ARTHROPATHY
     Route: 042
  2. REMICADE [Suspect]
     Dosage: 3 INFUSIONS TOTAL
     Route: 042
  3. REMICADE [Suspect]
     Indication: PSORIASIS
     Dosage: 3 INFUSIONS TOTAL
     Route: 042
  4. REMICADE [Suspect]
     Route: 042
  5. PREVACID [Concomitant]
     Indication: GASTROOESOPHAGEAL REFLUX DISEASE
  6. METHOTREXATE [Concomitant]
     Indication: PSORIASIS

REACTIONS (1)
  - SYSTEMIC LUPUS ERYTHEMATOSUS [None]
